FAERS Safety Report 9975289 (Version 1)
Quarter: 2014Q1

REPORT INFORMATION
  Report Type: Report from Study
  Country: US (occurrence: US)
  Receive Date: 20140306
  Receipt Date: 20140306
  Transmission Date: 20141002
  Serious: No
  Sender: FDA-Public Use
  Company Number: US-ABBVIE-13P-163-1155523-00

PATIENT
  Age: 55 Year
  Sex: Female

DRUGS (4)
  1. HUMIRA [Suspect]
     Indication: CROHN^S DISEASE
     Dates: start: 20130923, end: 20130923
  2. HUMIRA [Suspect]
     Dates: start: 20131007, end: 20131007
  3. WARFARIN [Concomitant]
     Indication: PRODUCT USED FOR UNKNOWN INDICATION
     Dosage: 2 MG DAILY, FOLLOWING STROKE
     Dates: start: 201305
  4. PREDNISONE [Concomitant]
     Indication: PRODUCT USED FOR UNKNOWN INDICATION
     Dosage: WILL GO TO 5 MG TOMORROW THEN TAPER OFF COMPLETELY NEXT WEEK

REACTIONS (1)
  - Injection site erythema [Not Recovered/Not Resolved]
